FAERS Safety Report 6632389-7 (Version None)
Quarter: 2010Q1

REPORT INFORMATION
  Report Type: 
  Country: None (occurrence: None)
  Receive Date: 20100312
  Receipt Date: 20100302
  Transmission Date: 20100710
  Serious: Yes (Death, Hospitalization, Disabling)
  Sender: FDA-Public Use
  Company Number: US-MERCK-0601USA01862

PATIENT
  Age: 76 Year
  Sex: Female
  Weight: 56 kg

DRUGS (11)
  1. FOSAMAX [Suspect]
     Indication: OSTEOPOROSIS
     Route: 048
     Dates: start: 20010402, end: 20051221
  2. TIMOLOL [Concomitant]
     Route: 047
  3. PREMARIN [Concomitant]
     Route: 065
  4. ACIPHEX [Concomitant]
     Route: 065
  5. MAXZIDE [Concomitant]
     Route: 065
  6. ATENOLOL [Concomitant]
     Route: 065
  7. ZOLOFT [Concomitant]
     Route: 065
  8. LEVOXYL [Concomitant]
     Route: 065
  9. FERROUS SULFATE [Concomitant]
     Route: 065
  10. METHOCARBAMOL [Concomitant]
     Route: 065
  11. AMBIEN [Concomitant]
     Route: 065

REACTIONS (48)
  - ACUTE PULMONARY OEDEMA [None]
  - ANAEMIA [None]
  - ANAL SPHINCTER ATONY [None]
  - ASTHENIA [None]
  - ATRIAL FIBRILLATION [None]
  - BLOOD CREATININE INCREASED [None]
  - BLOOD UREA INCREASED [None]
  - CARDIAC FAILURE CONGESTIVE [None]
  - CEREBROVASCULAR ACCIDENT [None]
  - CHEST PAIN [None]
  - CONTUSION [None]
  - DEATH [None]
  - DELIRIUM [None]
  - DIARRHOEA [None]
  - DIARRHOEA INFECTIOUS [None]
  - DRUG HYPERSENSITIVITY [None]
  - DYSARTHRIA [None]
  - DYSPHAGIA [None]
  - EJECTION FRACTION DECREASED [None]
  - ELECTROLYTE IMBALANCE [None]
  - FALL [None]
  - GLUCOSE TOLERANCE IMPAIRED [None]
  - HAEMORRHOIDS [None]
  - HALLUCINATION [None]
  - HELICOBACTER TEST POSITIVE [None]
  - HIATUS HERNIA [None]
  - HYPOKALAEMIA [None]
  - HYPONATRAEMIA [None]
  - HYPOTENSION [None]
  - HYPOVOLAEMIA [None]
  - INFUSION SITE IRRITATION [None]
  - INTERVERTEBRAL DISC DISPLACEMENT [None]
  - IRRITABLE BOWEL SYNDROME [None]
  - LIVER DISORDER [None]
  - MALABSORPTION [None]
  - OESOPHAGEAL STENOSIS [None]
  - OSTEOMYELITIS [None]
  - OSTEONECROSIS [None]
  - PAIN [None]
  - PULMONARY OEDEMA [None]
  - REFLUX OESOPHAGITIS [None]
  - RESTLESS LEGS SYNDROME [None]
  - SKIN LACERATION [None]
  - SYNCOPE [None]
  - UPPER GASTROINTESTINAL HAEMORRHAGE [None]
  - URINARY TRACT INFECTION [None]
  - VOMITING [None]
  - WEIGHT DECREASED [None]
